FAERS Safety Report 20732073 (Version 1)
Quarter: 2022Q2

REPORT INFORMATION
  Report Type: Report from Study
  Country: US (occurrence: US)
  Receive Date: 20220420
  Receipt Date: 20220420
  Transmission Date: 20220721
  Serious: Yes (Other)
  Sender: FDA-Public Use
  Company Number: US-PFIZER INC-202200544454

PATIENT

DRUGS (2)
  1. DOXORUBICIN HYDROCHLORIDE [Suspect]
     Active Substance: DOXORUBICIN HYDROCHLORIDE
     Dosage: UNK, CYCLIC, 60 MG/M2 TO 75 MG/M2
     Route: 064
  2. CISPLATIN [Suspect]
     Active Substance: CISPLATIN
     Dosage: UNK, CYCLIC
     Route: 064

REACTIONS (2)
  - Maternal exposure during pregnancy [Unknown]
  - Premature baby [Unknown]
